FAERS Safety Report 8459399-1 (Version None)
Quarter: 2012Q2

REPORT INFORMATION
  Report Type: 
  Country: None (occurrence: None)
  Receive Date: 20120615
  Receipt Date: 20120525
  Transmission Date: 20120825
  Serious: Yes (Other)
  Sender: FDA-Public Use
  Company Number: 2012POI057500098

PATIENT

DRUGS (1)
  1. LYSTEDA [Suspect]
     Indication: CARDIAC OPERATION

REACTIONS (2)
  - MYOCLONUS [None]
  - RENAL IMPAIRMENT [None]
